FAERS Safety Report 18581183 (Version 1)
Quarter: 2020Q4

REPORT INFORMATION
  Report Type: Spontaneous
  Country: NL (occurrence: NL)
  Receive Date: 20201204
  Receipt Date: 20201204
  Transmission Date: 20210114
  Serious: Yes (Disabling)
  Sender: FDA-Public Use
  Company Number: NL-TEVA-2020-NL-1854726

PATIENT
  Age: 45 Year
  Sex: Male
  Weight: 80 kg

DRUGS (4)
  1. VALACICLOVIR TABLET  500MG / BRAND NAME NOT SPECIFIED [Concomitant]
     Dosage: UNIT DOSE : 500 MG, THERAPY START DATE AND END DATE : ASKU
  2. COTRIMOXAZOL 480 TABLET  80/400MG / BRAND NAME NOT SPECIFIED [Concomitant]
     Dosage: UNIT DOSE : 480 MG, THERAPY START DATE AND END DATE : ASKU
  3. PANTOPRAZOL TABLET MSR 20MG / MAAGZUURTABLET PANTOPRAZOL SAM TABLET MS [Concomitant]
     Dosage: UNIT DOSE : 40 MG, THERAPY START DATE AND END DATE : ASKU
  4. IMATINIB TABLET 600MG / BRAND NAME NOT SPECIFIED [Suspect]
     Active Substance: IMATINIB
     Indication: ACUTE LEUKAEMIA
     Dosage: 1XDAY, UNIT DOSE : 1 DOSAGE FORMS
     Dates: start: 20201010, end: 20201113

REACTIONS (1)
  - Blindness [Recovering/Resolving]

NARRATIVE: CASE EVENT DATE: 20201107
